FAERS Safety Report 4687505-3 (Version None)
Quarter: 2005Q2

REPORT INFORMATION
  Report Type: 
  Country: None (occurrence: None)
  Receive Date: 20050609
  Receipt Date: 20020830
  Transmission Date: 20051028
  Serious: Yes (Hospitalization)
  Sender: FDA-Public Use
  Company Number: HU-SANOFI-SYNTHELABO-D01200200432

PATIENT
  Sex: Male
  Weight: 82 kg

DRUGS (3)
  1. ALFUZOSIN [Suspect]
     Route: 048
     Dates: start: 20011019, end: 20031013
  2. METOPROLOL TARTRATE [Concomitant]
     Dosage: 50 MG
     Route: 065
     Dates: start: 19960101, end: 20020707
  3. METOPROLOL [Concomitant]
     Dosage: 25 MG
     Route: 065
     Dates: start: 20020701, end: 20021212

REACTIONS (3)
  - ANGINA PECTORIS [None]
  - HYPERTENSION [None]
  - MYOCARDIAL ISCHAEMIA [None]
